FAERS Safety Report 7294945-5 (Version None)
Quarter: 2011Q1

REPORT INFORMATION
  Report Type: 
  Country: None (occurrence: None)
  Receive Date: 20110211
  Receipt Date: 20110211
  Transmission Date: 20110831
  Serious: Yes (Life-Threatening, Other)
  Sender: FDA-Public Use
  Company Number: None

PATIENT
  Sex: Female
  Weight: 61.2356 kg

DRUGS (2)
  1. COREG [Suspect]
     Indication: HYPERTENSION
     Dosage: 3,125 MG 1 QD ORAL
     Route: 048
  2. COREG [Suspect]
     Indication: HYPERTENSION
     Dosage: 40MG 1 QD ORAL
     Route: 048
     Dates: start: 20100101, end: 20110110

REACTIONS (2)
  - RENAL PAIN [None]
  - PROTEIN URINE [None]
